FAERS Safety Report 4531701-2 (Version None)
Quarter: 2004Q4

REPORT INFORMATION
  Report Type: 
  Country: None (occurrence: None)
  Receive Date: 20041206
  Receipt Date: 20040921
  Transmission Date: 20050328
  Serious: No
  Sender: FDA-Public Use
  Company Number: USA040978979

PATIENT
  Age: 41 Year
  Sex: Female
  Weight: 68.0396 kg

DRUGS (4)
  1. CYMBALTA [Suspect]
     Indication: NEUROPATHY
     Dosage: 60 MG AT BEDTIME
     Dates: start: 20040916
  2. FLUOXETINE [Concomitant]
  3. OXYCONTIN [Concomitant]
  4. PERCOCET [Concomitant]

REACTIONS (5)
  - ASTHENIA [None]
  - CHILLS [None]
  - FEELING ABNORMAL [None]
  - HYPERHIDROSIS [None]
  - INSOMNIA [None]
